FAERS Safety Report 14393633 (Version 1)
Quarter: 2018Q1

REPORT INFORMATION
  Report Type: Spontaneous
  Country: US (occurrence: US)
  Receive Date: 20180112
  Receipt Date: 20180112
  Transmission Date: 20180509
  Serious: Yes (Other)
  Sender: FDA-Public Use
  Company Number: None

PATIENT
  Age: 48 Year
  Sex: Female

DRUGS (15)
  1. XELJANZ XR [Suspect]
     Active Substance: TOFACITINIB CITRATE
     Indication: RHEUMATOID ARTHRITIS
     Route: 048
     Dates: start: 201610
  2. TIZANIDINE. [Concomitant]
     Active Substance: TIZANIDINE
  3. LORAZEPAM. [Concomitant]
     Active Substance: LORAZEPAM
  4. LEVOFLOXACIN. [Concomitant]
     Active Substance: LEVOFLOXACIN
  5. TOPIRAMATE. [Concomitant]
     Active Substance: TOPIRAMATE
  6. LEVOTHYROXIN [Concomitant]
     Active Substance: LEVOTHYROXINE
  7. DESVENLAFAX [Concomitant]
  8. TECFIDERA [Concomitant]
     Active Substance: DIMETHYL FUMARATE
  9. OXYCODONE AND ACETAMINOPHEN [Concomitant]
     Active Substance: ACETAMINOPHEN\OXYCODONE HYDROCHLORIDE
  10. VANCOMYC/DEX [Concomitant]
  11. DEXTROAMPHET SACCHARAT, AMPHET ASPARTATE, DEXTROAMPHET SULFATE AND AMPHET SULFAT [Concomitant]
     Active Substance: AMPHETAMINE ASPARTATE\AMPHETAMINE SULFATE\DEXTROAMPHETAMINE SACCHARATE\DEXTROAMPHETAMINE SULFATE
  12. LINZESS [Concomitant]
     Active Substance: LINACLOTIDE
  13. VIRTUSSIN AC SOLN [Concomitant]
  14. FENTANYL. [Concomitant]
     Active Substance: FENTANYL
  15. MEDROXYPR AC MEDROXYPROGESTERONE ACETATE 150 MG [Concomitant]
     Active Substance: MEDROXYPROGESTERONE ACETATE

REACTIONS (3)
  - Weight decreased [None]
  - Malabsorption [None]
  - Thyroid cancer [None]
